FAERS Safety Report 5867433-8 (Version None)
Quarter: 2008Q3

REPORT INFORMATION
  Report Type: 
  Country: None (occurrence: None)
  Receive Date: 20080902
  Receipt Date: 20080902
  Transmission Date: 20090109
  Serious: Yes (Hospitalization)
  Sender: FDA-Public Use
  Company Number: PHEH1996US01027

PATIENT
  Sex: Female

DRUGS (5)
  1. SANDIMMUNE [Suspect]
     Route: 048
     Dates: start: 19951023
  2. IMURAN [Concomitant]
  3. PREDNISONE TAB [Concomitant]
  4. CARDIZEM [Concomitant]
  5. BACTRIM DS [Concomitant]

REACTIONS (1)
  - TRANSPLANT REJECTION [None]
